FAERS Safety Report 7036261-2 (Version None)
Quarter: 2010Q4

REPORT INFORMATION
  Report Type: 
  Country: None (occurrence: None)
  Receive Date: 20101008
  Receipt Date: 20100929
  Transmission Date: 20110411
  Serious: Yes (Hospitalization, Other)
  Sender: FDA-Public Use
  Company Number: CA-ABBOTT-10P-028-0671475-00

PATIENT
  Sex: Female

DRUGS (1)
  1. HUMIRA [Suspect]
     Indication: CROHN'S DISEASE
     Route: 058
     Dates: start: 20100511, end: 20100831

REACTIONS (7)
  - ABDOMINAL PAIN [None]
  - CROHN'S DISEASE [None]
  - FATIGUE [None]
  - INTESTINAL PERFORATION [None]
  - RASH PUSTULAR [None]
  - SMALL INTESTINAL OBSTRUCTION [None]
  - TREATMENT FAILURE [None]
